FAERS Safety Report 21094030 (Version 1)
Quarter: 2022Q3

REPORT INFORMATION
  Report Type: Other
  Country: US (occurrence: US)
  Receive Date: 20220718
  Receipt Date: 20220718
  Transmission Date: 20221027
  Serious: Yes (Hospitalization, Other)
  Sender: FDA-Public Use
  Company Number: US-HLS-202200780

PATIENT
  Age: 48 Year
  Sex: Female

DRUGS (2)
  1. CLOZAPINE [Suspect]
     Active Substance: CLOZAPINE
     Indication: Psychotic disorder
     Dosage: 400MG DAILY, REDUCED TO 300MG
     Route: 065
  2. UNSPECIFIED INGREDIENT [Concomitant]
     Active Substance: UNSPECIFIED INGREDIENT
     Indication: Seizure
     Dosage: 200MG TWICE DAILY
     Route: 065

REACTIONS (19)
  - Mental status changes [Unknown]
  - Hallucination, auditory [Unknown]
  - Confusional state [Unknown]
  - Disorientation [Unknown]
  - Drug eruption [Unknown]
  - Change in sustained attention [Unknown]
  - Automatism [Unknown]
  - Endotracheal intubation [Recovered/Resolved]
  - Status epilepticus [Unknown]
  - Paranoia [Unknown]
  - Delusion [Unknown]
  - Pneumonia [Unknown]
  - Psychotic disorder [Unknown]
  - Mental impairment [Unknown]
  - Sedation [Unknown]
  - Seizure [Unknown]
  - Suicidal ideation [Unknown]
  - Suicide attempt [Unknown]
  - Urinary tract infection [Unknown]
